FAERS Safety Report 6181077-2 (Version None)
Quarter: 2009Q2

REPORT INFORMATION
  Report Type: 
  Country: None (occurrence: None)
  Receive Date: 20090506
  Receipt Date: 20090504
  Transmission Date: 20091009
  Serious: No
  Sender: FDA-Public Use
  Company Number: US-B.I. PHARMACEUTICALS,INC./RIDGEFIELD-2009-BP-05554BP

PATIENT
  Age: 87 Year
  Sex: Male

DRUGS (2)
  1. FLOMAX [Suspect]
  2. AVODART [Suspect]

REACTIONS (2)
  - EJACULATION FAILURE [None]
  - ERECTILE DYSFUNCTION [None]
